FAERS Safety Report 6575830-0 (Version None)
Quarter: 2010Q1

REPORT INFORMATION
  Report Type: 
  Country: None (occurrence: None)
  Receive Date: 20100209
  Receipt Date: 20100128
  Transmission Date: 20100710
  Serious: Yes (Other)
  Sender: FDA-Public Use
  Company Number: CL-SANOFI-AVENTIS-2010SA005256

PATIENT
  Age: 64 Year
  Sex: Female

DRUGS (4)
  1. OXALIPLATIN [Suspect]
  2. OXALIPLATIN [Suspect]
     Route: 041
     Dates: start: 20100128, end: 20100128
  3. XELODA [Concomitant]
     Indication: COLON CANCER
     Route: 048
     Dates: end: 20100128
  4. OMEPRAZOLE [Concomitant]
     Indication: PROPHYLAXIS
     Route: 048
     Dates: start: 20090301

REACTIONS (1)
  - LARYNGEAL OBSTRUCTION [None]
